FAERS Safety Report 16550673 (Version 2)
Quarter: 2019Q3

REPORT INFORMATION
  Report Type: Spontaneous
  Country: US (occurrence: US)
  Receive Date: 20190710
  Receipt Date: 20190715
  Transmission Date: 20191004
  Serious: No
  Sender: FDA-Public Use
  Company Number: US-AMGEN INC.-USASP2019109500

PATIENT
  Age: 41 Year
  Sex: Male

DRUGS (7)
  1. ARIPIPRAZOLE. [Concomitant]
     Active Substance: ARIPIPRAZOLE
     Dosage: UNK
  2. INDERAL LA [Concomitant]
     Active Substance: PROPRANOLOL HYDROCHLORIDE
     Dosage: UNK
  3. TOPAMAX [Concomitant]
     Active Substance: TOPIRAMATE
     Dosage: UNK
  4. RELPAX [Concomitant]
     Active Substance: ELETRIPTAN HYDROBROMIDE
     Dosage: UNK
  5. AIMOVIG [Suspect]
     Active Substance: ERENUMAB-AOOE
     Indication: MIGRAINE WITHOUT AURA
     Dosage: 140 MILLIGRAM, QMO (EVERY 30 DAYS)
     Route: 058
     Dates: start: 201811
  6. DEPAKOTE [Concomitant]
     Active Substance: DIVALPROEX SODIUM
     Dosage: UNK
  7. IMITREX [Concomitant]
     Active Substance: SUMATRIPTAN SUCCINATE
     Dosage: UNK

REACTIONS (3)
  - Myalgia [Recovered/Resolved]
  - Colonoscopy [Unknown]
  - Injection site pain [Recovered/Resolved with Sequelae]
